FAERS Safety Report 5006668-3 (Version None)
Quarter: 2006Q2

REPORT INFORMATION
  Report Type: 
  Country: None (occurrence: None)
  Receive Date: 20060519
  Receipt Date: 20060510
  Transmission Date: 20061013
  Serious: Yes (Other)
  Sender: FDA-Public Use
  Company Number: IR-ROCHE-447662

PATIENT
  Age: 24 Year
  Sex: Male

DRUGS (4)
  1. ZENAPAX [Suspect]
     Indication: PROPHYLAXIS AGAINST TRANSPLANT REJECTION
     Dosage: FOR FOUR DOSES.
     Route: 042
     Dates: start: 20051015
  2. MYCOPHENOLATE MOFETIL [Concomitant]
  3. SANDIMMUNE [Concomitant]
  4. PREDNISOLONE [Concomitant]

REACTIONS (1)
  - LYMPHOMA [None]
